FAERS Safety Report 6687039-0 (Version None)
Quarter: 2010Q2

REPORT INFORMATION
  Report Type: 
  Country: None (occurrence: None)
  Receive Date: 20100414
  Receipt Date: 20100331
  Transmission Date: 20101027
  Serious: Yes (Other)
  Sender: FDA-Public Use
  Company Number: 2010AP000669

PATIENT
  Sex: Male

DRUGS (10)
  1. RANITIDINE HYDROCHLORIDE [Suspect]
  2. BENDROFLUMETHIAZIDE (BENDROFLUMETHIAZIDE) [Suspect]
  3. BISOPROLOL FUMARATE [Suspect]
  4. COLOFAC (MEBEVERINE HYDROCHLORIDE) [Suspect]
     Indication: IRRITABLE BOWEL SYNDROME
  5. DOXAZOSIN MESYLATE [Suspect]
  6. EDRONAX (REBOXETINE) [Suspect]
     Indication: DEPRESSION
     Dates: start: 20100223
  7. MOTILIUM [Suspect]
  8. NEXIUM [Suspect]
  9. AMITRIPTYLINE HYDROCHLORIDE [Concomitant]
  10. CLOMIPRAMINE HCL [Concomitant]

REACTIONS (3)
  - DRUG INTERACTION [None]
  - FATIGUE [None]
  - SEDATION [None]
